FAERS Safety Report 7758910-3 (Version None)
Quarter: 2011Q3

REPORT INFORMATION
  Report Type: 
  Country: None (occurrence: None)
  Receive Date: 20110919
  Receipt Date: 20110912
  Transmission Date: 20111222
  Serious: No
  Sender: FDA-Public Use
  Company Number: US-BAYER-2011-085614

PATIENT
  Sex: Female

DRUGS (2)
  1. MIRENA [Suspect]
     Dosage: 20 MCG/24HR, CONT
  2. MIRENA [Suspect]
     Dosage: 20 MCG/24HR, CONT

REACTIONS (7)
  - DEPRESSED MOOD [None]
  - WEIGHT INCREASED [None]
  - NERVOUSNESS [None]
  - ADVERSE EVENT [None]
  - ACNE [None]
  - HEADACHE [None]
  - MOOD SWINGS [None]
